FAERS Safety Report 9043082 (Version 1)
Quarter: 2013Q1

REPORT INFORMATION
  Report Type: Report from Study
  Country: US (occurrence: US)
  Receive Date: 20130129
  Receipt Date: 20130129
  Transmission Date: 20140127
  Serious: No
  Sender: FDA-Public Use
  Company Number: US-ABBOTT-12P-163-0910806-00

PATIENT
  Age: 65 Year
  Sex: Male
  Weight: 95.34 kg

DRUGS (7)
  1. HUMIRA 40 MG/0.8 ML PEN [Suspect]
     Indication: PSORIASIS
     Dates: start: 20120215, end: 20120215
  2. HUMIRA 40 MG/0.8 ML PEN [Suspect]
     Dates: start: 20120222
  3. PLAVIX [Concomitant]
     Indication: CORONARY ARTERY DISEASE
  4. ASPIRIN [Concomitant]
     Indication: CORONARY ARTERY DISEASE
  5. LIPITOR [Concomitant]
     Indication: BLOOD CHOLESTEROL INCREASED
  6. METOPROLOL [Concomitant]
     Indication: CORONARY ARTERY DISEASE
  7. METOPROLOL [Concomitant]
     Indication: HYPERTENSION

REACTIONS (1)
  - Incorrect product storage [Not Recovered/Not Resolved]
